FAERS Safety Report 24038674 (Version 1)
Quarter: 2024Q3

REPORT INFORMATION
  Report Type: Report from Study
  Country: US (occurrence: US)
  Receive Date: 20240702
  Receipt Date: 20240702
  Transmission Date: 20241016
  Serious: Yes (Other)
  Sender: SANOFI AVENTIS
  Company Number: US-SA-SAC20240624001015

PATIENT
  Age: 22 Year
  Sex: Female
  Weight: 53.07 kg

DRUGS (12)
  1. DUPILUMAB [Suspect]
     Active Substance: DUPILUMAB
     Indication: Dermatitis atopic
     Dosage: 300 MG, Q2M
     Dates: start: 20180815, end: 20190315
  2. DUPILUMAB [Suspect]
     Active Substance: DUPILUMAB
     Dosage: 300 MG, Q2M
     Dates: start: 20190618, end: 20220921
  3. HYDROCORTISONE BUTYRATE [Concomitant]
     Active Substance: HYDROCORTISONE BUTYRATE
     Indication: Dermatitis atopic
     Dosage: UNK UNK, QW
     Dates: start: 20211219, end: 20220921
  4. METOPROLOL [Concomitant]
     Active Substance: METOPROLOL
     Indication: Heart rate
     Dosage: 25 MG, QD
     Route: 048
     Dates: start: 20220812, end: 20220915
  5. MODERNA COVID-19 VACCINE [Concomitant]
     Active Substance: ELASOMERAN
     Dosage: 1 DF
     Route: 030
     Dates: start: 20211203
  6. MODERNA COVID-19 VACCINE [Concomitant]
     Active Substance: ELASOMERAN
     Dosage: 1 DF
     Route: 030
     Dates: start: 20211223
  7. MODERNA COVID-19 VACCINE [Concomitant]
     Active Substance: ELASOMERAN
     Dosage: 1 DF
     Route: 030
     Dates: start: 20210122
  8. MUCINEX [Concomitant]
     Active Substance: GUAIFENESIN
     Indication: COVID-19
     Dosage: 1 DF, QD
     Route: 048
     Dates: start: 20220829, end: 20220830
  9. SINGULAIR [Concomitant]
     Active Substance: MONTELUKAST SODIUM
     Indication: Asthma
     Dosage: 10 MG, QD, STOP DATE: 21-SEP-2022
     Route: 048
     Dates: start: 20221219
  10. TYLENOL [Concomitant]
     Active Substance: ACETAMINOPHEN
     Indication: COVID-19
     Dosage: 1000 MG, Q3D
     Route: 048
     Dates: start: 20220825, end: 20220830
  11. VALTREX [Concomitant]
     Active Substance: VALACYCLOVIR HYDROCHLORIDE
     Indication: Oral herpes
     Dosage: 500 MG, QD
     Route: 048
     Dates: start: 20210326, end: 20220921
  12. VITAMIN B6 [Concomitant]
     Active Substance: PYRIDOXINE HYDROCHLORIDE
     Indication: Nausea
     Dosage: 25 MG, BID
     Route: 048
     Dates: start: 20220215, end: 20220921

REACTIONS (1)
  - Exposure during pregnancy [Unknown]

NARRATIVE: CASE EVENT DATE: 20180815
